FAERS Safety Report 11203881 (Version 1)
Quarter: 2015Q2

REPORT INFORMATION
  Report Type: Spontaneous
  Country: US (occurrence: US)
  Receive Date: 20150619
  Receipt Date: 20150619
  Transmission Date: 20150821
  Serious: Yes (Hospitalization, Other)
  Sender: FDA-Public Use
  Company Number: US-ASTRAZENECA-2013SE14346

PATIENT
  Age: 78 Year
  Sex: Female
  Weight: 49.9 kg

DRUGS (15)
  1. PULMICORT TURBUHALER [Suspect]
     Active Substance: BUDESONIDE
     Indication: ASTHMA
     Route: 055
  2. PULMICORT TURBUHALER [Suspect]
     Active Substance: BUDESONIDE
     Indication: CHRONIC OBSTRUCTIVE PULMONARY DISEASE
     Route: 055
  3. CARVEDILOL. [Concomitant]
     Active Substance: CARVEDILOL
     Indication: CARDIAC FAILURE CONGESTIVE
     Route: 048
  4. LEVOTHYROXINE [Concomitant]
     Active Substance: LEVOTHYROXINE
     Indication: THYROID DISORDER
     Route: 048
  5. SERTRALINE [Concomitant]
     Active Substance: SERTRALINE HYDROCHLORIDE
     Indication: DEPRESSION
     Route: 048
  6. FLUTICASONE [Concomitant]
     Active Substance: FLUTICASONE\FLUTICASONE PROPIONATE
     Indication: MULTIPLE ALLERGIES
     Route: 045
  7. PULMICORT TURBUHALER [Suspect]
     Active Substance: BUDESONIDE
     Indication: CHRONIC OBSTRUCTIVE PULMONARY DISEASE
     Route: 055
  8. PULMICORT TURBUHALER [Suspect]
     Active Substance: BUDESONIDE
     Indication: CHRONIC OBSTRUCTIVE PULMONARY DISEASE
     Route: 055
  9. PULMICORT TURBUHALER [Suspect]
     Active Substance: BUDESONIDE
     Indication: ASTHMA
     Dosage: TWO TIMES A DAY
     Route: 055
  10. CLONAZEPAM. [Concomitant]
     Active Substance: CLONAZEPAM
     Indication: ANXIETY
     Route: 048
  11. LISINOPRIL. [Suspect]
     Active Substance: LISINOPRIL
     Route: 048
  12. SPIRONOLACTONE. [Concomitant]
     Active Substance: SPIRONOLACTONE
     Indication: FLUID IMBALANCE
     Route: 048
  13. PULMICORT TURBUHALER [Suspect]
     Active Substance: BUDESONIDE
     Indication: ASTHMA
     Route: 055
  14. PULMICORT TURBUHALER [Suspect]
     Active Substance: BUDESONIDE
     Indication: ASTHMA
     Route: 055
  15. PULMICORT TURBUHALER [Suspect]
     Active Substance: BUDESONIDE
     Indication: CHRONIC OBSTRUCTIVE PULMONARY DISEASE
     Dosage: TWO TIMES A DAY
     Route: 055

REACTIONS (30)
  - Asthenia [Recovered/Resolved]
  - Oropharyngeal pain [Not Recovered/Not Resolved]
  - Cough [Not Recovered/Not Resolved]
  - Rhinitis [Unknown]
  - Anaemia [Unknown]
  - Productive cough [None]
  - Dyspnoea [Not Recovered/Not Resolved]
  - Asthma [Recovered/Resolved with Sequelae]
  - Malnutrition [Unknown]
  - Dyspnoea [Unknown]
  - Musculoskeletal disorder [Recovered/Resolved]
  - Irritable bowel syndrome [Recovered/Resolved]
  - Pneumonia [Recovered/Resolved with Sequelae]
  - Fall [None]
  - Body temperature increased [Recovered/Resolved]
  - Bronchitis [Recovered/Resolved with Sequelae]
  - Dizziness [None]
  - Malaise [Recovered/Resolved]
  - Syncope [Recovered/Resolved]
  - Lung infection [Recovered/Resolved with Sequelae]
  - Weight abnormal [Not Recovered/Not Resolved]
  - Dysphonia [Unknown]
  - Ingrowing nail [Recovered/Resolved]
  - Intentional product misuse [Unknown]
  - Oxygen saturation decreased [Recovered/Resolved]
  - Hordeolum [Not Recovered/Not Resolved]
  - Cardiac failure congestive [Unknown]
  - Choking [Unknown]
  - Blood glucose decreased [Recovered/Resolved]
  - Drug dose omission [None]

NARRATIVE: CASE EVENT DATE: 2013
